FAERS Safety Report 5046650-3 (Version None)
Quarter: 2006Q3

REPORT INFORMATION
  Report Type: 
  Country: None (occurrence: None)
  Receive Date: 20060710
  Receipt Date: 20060703
  Transmission Date: 20061208
  Serious: Yes (Other)
  Sender: FDA-Public Use
  Company Number: US-BRISTOL-MYERS SQUIBB COMPANY-13431911

PATIENT
  Sex: Female

DRUGS (4)
  1. ERBITUX [Suspect]
     Dosage: FIRST DOSE.
     Route: 042
     Dates: start: 20060601, end: 20060601
  2. DEXAMETHASONE [Concomitant]
     Indication: PREMEDICATION
     Dates: start: 20060601, end: 20060601
  3. DIPHENHYDRAMINE HCL [Concomitant]
     Indication: PREMEDICATION
     Dates: start: 20060601, end: 20060601
  4. TYLENOL (CAPLET) [Concomitant]
     Indication: PREMEDICATION
     Dates: start: 20060601, end: 20060601

REACTIONS (1)
  - HYPERTENSION [None]
